FAERS Safety Report 9974070 (Version 1)
Quarter: 2014Q1

REPORT INFORMATION
  Report Type: Spontaneous
  Country: US (occurrence: US)
  Receive Date: 20140306
  Receipt Date: 20140306
  Transmission Date: 20141002
  Serious: Yes (Other)
  Sender: FDA-Public Use
  Company Number: US-GLAXOSMITHKLINE-A1062693A

PATIENT
  Sex: Female

DRUGS (4)
  1. COREG CR [Suspect]
     Indication: CARDIAC DISORDER
     Dosage: 40MG PER DAY
     Route: 048
  2. UNKNOWN MEDICATION [Suspect]
     Indication: PRODUCT USED FOR UNKNOWN INDICATION
     Route: 065
  3. COUMADIN [Concomitant]
  4. UNKNOWN MEDICATION [Concomitant]

REACTIONS (8)
  - Cerebrovascular accident [Unknown]
  - Throat tightness [Unknown]
  - VIIth nerve paralysis [Not Recovered/Not Resolved]
  - Sensory loss [Not Recovered/Not Resolved]
  - Cerebral haemorrhage [Unknown]
  - Vomiting [Not Recovered/Not Resolved]
  - Nausea [Not Recovered/Not Resolved]
  - Erythema [Unknown]
